FAERS Safety Report 13630586 (Version 1)
Quarter: 2017Q2

REPORT INFORMATION
  Report Type: Spontaneous
  Country: US (occurrence: US)
  Receive Date: 20170531
  Receipt Date: 20170531
  Transmission Date: 20170830
  Serious: No
  Sender: FDA-Public Use
  Company Number: US-ASTELLAS-1312914

PATIENT
  Sex: Male

DRUGS (9)
  1. MEGACE [Concomitant]
     Active Substance: MEGESTROL ACETATE
  2. PRAVASTATIN. [Concomitant]
     Active Substance: PRAVASTATIN
  3. FERREX [Concomitant]
  4. NEURONTIN [Concomitant]
     Active Substance: GABAPENTIN
  5. TARCEVA [Suspect]
     Active Substance: ERLOTINIB HYDROCHLORIDE
     Indication: LUNG NEOPLASM MALIGNANT
     Route: 065
     Dates: start: 20130824
  6. OXYCODONE [Concomitant]
     Active Substance: OXYCODONE
  7. XANAX [Concomitant]
     Active Substance: ALPRAZOLAM
  8. DIGOXIN. [Concomitant]
     Active Substance: DIGOXIN
  9. ONDANSETRON [Concomitant]
     Active Substance: ONDANSETRON

REACTIONS (1)
  - Rash [Recovering/Resolving]
